FAERS Safety Report 6413077-9 (Version None)
Quarter: 2009Q4

REPORT INFORMATION
  Report Type: 
  Country: None (occurrence: None)
  Receive Date: 20091022
  Receipt Date: 20091022
  Transmission Date: 20100525
  Serious: No
  Sender: FDA-Public Use
  Company Number: None

PATIENT
  Age: 48 Year
  Sex: Female
  Weight: 58.9676 kg

DRUGS (1)
  1. ALLI [Suspect]
     Indication: WEIGHT DECREASED
     Dosage: 1 PILL 1 PER DAY PO
     Route: 048
     Dates: start: 20090401, end: 20091021

REACTIONS (3)
  - PAIN [None]
  - RASH PRURITIC [None]
  - URTICARIA [None]
